FAERS Safety Report 9796512 (Version 1)
Quarter: 2014Q1

REPORT INFORMATION
  Report Type: Spontaneous
  Country: US (occurrence: US)
  Receive Date: 20140103
  Receipt Date: 20140103
  Transmission Date: 20141002
  Serious: No
  Sender: FDA-Public Use
  Company Number: US-BAXTER-2013BAX052786

PATIENT
  Sex: 0

DRUGS (2)
  1. 0.25% ACETIC ACID IRRIGATION, USP IN PLASTIC POUR BOTTLES [Suspect]
     Indication: PRODUCT USED FOR UNKNOWN INDICATION
     Route: 065
  2. WATER FOR INJECTION_WATER FOR INJECTION 100.00 %_SOLUTION FOR INFUSION [Suspect]
     Indication: PRODUCT USED FOR UNKNOWN INDICATION
     Route: 065

REACTIONS (2)
  - Product label confusion [Unknown]
  - Medication error [Unknown]
